FAERS Safety Report 7574646-6 (Version None)
Quarter: 2011Q2

REPORT INFORMATION
  Report Type: 
  Country: None (occurrence: None)
  Receive Date: 20110627
  Receipt Date: 20090725
  Transmission Date: 20111010
  Serious: Yes (Death, Hospitalization, Other)
  Sender: FDA-Public Use
  Company Number: US-BAYER-200927534NA

PATIENT
  Age: 71 Year
  Sex: Female
  Weight: 65.76 kg

DRUGS (20)
  1. LASIX [Concomitant]
     Dosage: 80 MG, UNK, LONGTERM USE
     Route: 048
  2. INSULIN [Concomitant]
     Dosage: 65 U, QD, LONG TERM USE
     Route: 058
  3. STARLIX [Concomitant]
     Dosage: 60 MG, UNK
     Route: 048
     Dates: start: 20041202
  4. VERSED [Concomitant]
     Dosage: 2 MG, UNK
     Route: 042
     Dates: start: 20041202, end: 20041202
  5. HEPARIN [Concomitant]
     Dosage: UNK
     Route: 042
     Dates: start: 20041209
  6. CONTRAST MEDIA [Concomitant]
     Indication: CATHETERISATION CARDIAC
     Dosage: UNK
     Dates: start: 20041202
  7. EPOETIN NOS [Concomitant]
     Dosage: 10000 U, UNK
     Route: 058
     Dates: start: 20041206
  8. PROTAMINE SULFATE [Concomitant]
     Dosage: UNK
     Route: 042
     Dates: start: 20041209, end: 20041209
  9. TRASYLOL [Suspect]
     Indication: PRODUCT USED FOR UNKNOWN INDICATION
     Dosage: 600 ML, ONCE, TOTAL LOADING DOSE
     Route: 042
     Dates: start: 20041209, end: 20041209
  10. NITROGLYCERIN [Concomitant]
     Dosage: 0.4 MG, UNK
     Route: 060
     Dates: start: 20041202
  11. LISINOPRIL [Concomitant]
     Dosage: 20 MG, UNK, LONG TERM USE
     Route: 048
  12. NORVASC [Concomitant]
     Dosage: 10 MG, UNK, LONG TERM USE
     Route: 048
  13. GLUCOTROL [Concomitant]
     Dosage: 20 MG, UNK, LONG TERM USE
     Route: 048
  14. DIOVAN [Concomitant]
     Dosage: 80 MG, UNK
     Route: 048
     Dates: start: 20040324, end: 20040428
  15. COREG [Concomitant]
     Dosage: 6.25 MG, UNK
     Route: 048
  16. CIPROFLOXACIN [Concomitant]
     Dosage: 500 MG, UNK
     Route: 048
     Dates: start: 20041202
  17. MUCOMYST [Concomitant]
     Dosage: UNK
     Dates: start: 20041202, end: 20041202
  18. LABETALOL HCL [Concomitant]
     Dosage: 200 MG, UNK, LONG TERM USE
     Route: 048
  19. METOPROLOL TARTRATE [Concomitant]
     Dosage: 50 MG, UNK
     Route: 048
     Dates: start: 20041202
  20. ACETYLSALICYLIC ACID SRT [Concomitant]
     Dosage: 325 MG, UNK
     Route: 048
     Dates: start: 20041202

REACTIONS (13)
  - DEATH [None]
  - RENAL IMPAIRMENT [None]
  - UNEVALUABLE EVENT [None]
  - ANHEDONIA [None]
  - INJURY [None]
  - STRESS [None]
  - RENAL FAILURE [None]
  - EMOTIONAL DISTRESS [None]
  - FEAR [None]
  - MULTI-ORGAN FAILURE [None]
  - RENAL INJURY [None]
  - PAIN [None]
  - ANXIETY [None]
